FAERS Safety Report 10093715 (Version 1)
Quarter: 2014Q2

REPORT INFORMATION
  Report Type: Spontaneous
  Country: US (occurrence: US)
  Receive Date: 20140421
  Receipt Date: 20140421
  Transmission Date: 20141212
  Serious: No
  Sender: FDA-Public Use
  Company Number: US-SA-2014SA003076

PATIENT
  Age: 74 Year
  Sex: Male

DRUGS (3)
  1. ALLEGRA 24 HOUR [Suspect]
     Indication: NASAL CONGESTION
     Route: 048
     Dates: start: 20140103, end: 20140106
  2. ALLEGRA 24 HOUR [Suspect]
     Indication: ASTHENIA
     Route: 048
     Dates: start: 20140103, end: 20140106
  3. ALLEGRA 24 HOUR [Suspect]
     Indication: PAIN
     Route: 048
     Dates: start: 20140103, end: 20140106

REACTIONS (5)
  - Viral infection [Not Recovered/Not Resolved]
  - Micturition disorder [Not Recovered/Not Resolved]
  - Dry skin [Not Recovered/Not Resolved]
  - Adverse event [Not Recovered/Not Resolved]
  - Therapeutic response decreased [Unknown]
